FAERS Safety Report 10426679 (Version 1)
Quarter: 2014Q3

REPORT INFORMATION
  Report Type: Report from Study
  Country: US (occurrence: US)
  Receive Date: 20140903
  Receipt Date: 20140903
  Transmission Date: 20150326
  Serious: Yes (Other)
  Sender: FDA-Public Use
  Company Number: US-SA-2014SA117358

PATIENT
  Age: 50 Year
  Sex: Male

DRUGS (2)
  1. SOLOSTAR [Concomitant]
     Active Substance: DEVICE
     Dates: start: 20140822
  2. LANTUS SOLOSTAR [Suspect]
     Active Substance: INSULIN GLARGINE
     Indication: TYPE 2 DIABETES MELLITUS
     Dosage: DOSE:76 UNIT(S)
     Route: 065
     Dates: start: 20140822

REACTIONS (4)
  - Thyroid disorder [Unknown]
  - Weight decreased [Unknown]
  - Blood glucose increased [Unknown]
  - Aphagia [Unknown]

NARRATIVE: CASE EVENT DATE: 20140822
